FAERS Safety Report 6243550-8 (Version None)
Quarter: 2009Q3

REPORT INFORMATION
  Report Type: 
  Country: None (occurrence: None)
  Receive Date: 20090622
  Receipt Date: 20090525
  Transmission Date: 20100115
  Serious: Yes (Other)
  Sender: FDA-Public Use
  Company Number: 2009SP011125

PATIENT
  Age: 66 Year
  Sex: Male
  Weight: 72 kg

DRUGS (1)
  1. INTRON A [Suspect]
     Indication: ADJUVANT THERAPY
     Dosage: 18 IU; SC
     Route: 058
     Dates: start: 20081001

REACTIONS (4)
  - CHONDRITIS [None]
  - EXTERNAL EAR DISORDER [None]
  - IMPAIRED HEALING [None]
  - ULCER [None]
